FAERS Safety Report 11047751 (Version 1)
Quarter: 2015Q2

REPORT INFORMATION
  Report Type: Spontaneous
  Country: US (occurrence: None)
  Receive Date: 20150417
  Receipt Date: 20150417
  Transmission Date: 20150821
  Serious: Yes (Hospitalization)
  Sender: FDA-Public Use
  Company Number: None

PATIENT
  Age: 63 Year
  Sex: Female
  Weight: 48.99 kg

DRUGS (1)
  1. PACLITAXEL. [Suspect]
     Active Substance: PACLITAXEL
     Indication: BREAST CANCER
     Route: 042
     Dates: start: 20150316, end: 20150416

REACTIONS (7)
  - Hyperhidrosis [None]
  - Nausea [None]
  - Flushing [None]
  - Vomiting [None]
  - Infusion related reaction [None]
  - Back pain [None]
  - Hypotension [None]

NARRATIVE: CASE EVENT DATE: 20150408
